FAERS Safety Report 7263539-X (Version None)
Quarter: 2011Q1

REPORT INFORMATION
  Report Type: 
  Country: None (occurrence: None)
  Receive Date: 20110130
  Receipt Date: 20101027
  Transmission Date: 20110831
  Serious: No
  Sender: FDA-Public Use
  Company Number: US-ABBOTT-10P-163-0681860-00

PATIENT
  Age: 43 Year
  Sex: Male

DRUGS (4)
  1. COUMADIN [Concomitant]
     Indication: THROMBOSIS
     Dosage: 6 DAYS A WEEK
  2. HUMIRA [Suspect]
     Indication: RHEUMATOID ARTHRITIS
  3. COUMADIN [Concomitant]
     Dosage: ON OTHER DAYS
  4. HUMIRA [Suspect]
     Indication: SARCOIDOSIS
     Dates: start: 20100801

REACTIONS (1)
  - INFLUENZA [None]
